FAERS Safety Report 7227649-5 (Version None)
Quarter: 2011Q1

REPORT INFORMATION
  Report Type: 
  Country: None (occurrence: None)
  Receive Date: 20110114
  Receipt Date: 20110110
  Transmission Date: 20110831
  Serious: No
  Sender: FDA-Public Use
  Company Number: US-PFIZER INC-2011005910

PATIENT
  Sex: Female

DRUGS (1)
  1. TOVIAZ [Suspect]

REACTIONS (4)
  - NIGHT SWEATS [None]
  - MUSCLE SPASMS [None]
  - PARAESTHESIA [None]
  - DYSURIA [None]
